FAERS Safety Report 5466829-6 (Version None)
Quarter: 2007Q3

REPORT INFORMATION
  Report Type: 
  Country: None (occurrence: None)
  Receive Date: 20070920
  Receipt Date: 20070816
  Transmission Date: 20080115
  Serious: Yes (Death)
  Sender: FDA-Public Use
  Company Number: 6037525

PATIENT
  Age: 84 Year
  Sex: Female

DRUGS (5)
  1. SERTRALINE [Suspect]
     Indication: DRUG USE FOR UNKNOWN INDICATION
     Dosage: (100 MG), (50 MG)
     Dates: start: 19930219
  2. SERTRALINE [Suspect]
     Indication: DRUG USE FOR UNKNOWN INDICATION
     Dosage: (100 MG), (50 MG)
     Dates: start: 19930221
  3. AMITRIPTYLINE HCL [Concomitant]
  4. HALOPERIDOL [Concomitant]
  5. SINEMET [Concomitant]

REACTIONS (1)
  - HEPATIC NECROSIS [None]
